FAERS Safety Report 16313521 (Version 1)
Quarter: 2019Q2

REPORT INFORMATION
  Report Type: Report from Study
  Country: None (occurrence: RO)
  Receive Date: 20190515
  Receipt Date: 20190515
  Transmission Date: 20190711
  Serious: Yes (Hospitalization)
  Sender: FDA-Public Use
  Company Number: RO-ABBVIE-19K-135-2779171-00

PATIENT
  Sex: Male

DRUGS (5)
  1. HUMIRA [Suspect]
     Active Substance: ADALIMUMAB
     Indication: ANKYLOSING SPONDYLITIS
     Route: 058
     Dates: start: 20110520
  2. OCUHYL C [Concomitant]
     Indication: PROPHYLAXIS
     Dosage: 4 APPLICATIONS/ DAY
     Route: 047
  3. ARCOXIA [Concomitant]
     Active Substance: ETORICOXIB
     Indication: ANKYLOSING SPONDYLITIS
     Dosage: AS NEEDED
     Route: 048
  4. FLAMEXIN [Concomitant]
     Active Substance: PIROXICAM BETADEX
     Indication: ANKYLOSING SPONDYLITIS
     Dosage: AS NEEDED
     Route: 048
  5. HUMIRA [Suspect]
     Active Substance: ADALIMUMAB
     Route: 058

REACTIONS (8)
  - Eye pruritus [Recovered/Resolved]
  - Ocular hyperaemia [Recovered/Resolved]
  - White blood cell count decreased [Recovered/Resolved]
  - Chalazion [Recovered/Resolved]
  - Chalazion [Recovered/Resolved]
  - Eye infection [Recovered/Resolved]
  - Nasopharyngitis [Recovered/Resolved]
  - Nephrolithiasis [Not Recovered/Not Resolved]

NARRATIVE: CASE EVENT DATE: 2014
